FAERS Safety Report 8825961 (Version 4)
Quarter: 2012Q4

REPORT INFORMATION
  Report Type: 
  Country: US (occurrence: US)
  Receive Date: 20121005
  Receipt Date: 20121109
  Transmission Date: 20130627
  Serious: Yes (Hospitalization)
  Sender: FDA-Public Use
  Company Number: US-VERTEX PHARMACEUTICAL INC.-2012-021455

PATIENT
  Age: 60 None
  Sex: Male
  Weight: 101 kg

DRUGS (11)
  1. INCIVEK [Suspect]
     Indication: HEPATITIS C
     Dosage: 750 mg, tid
     Route: 048
     Dates: start: 20120907, end: 20121106
  2. RIBAVIRIN [Suspect]
     Indication: HEPATITIS C
     Dosage: 1200 mg, qd
     Route: 048
     Dates: start: 20120907, end: 20121106
  3. PEGASYS [Suspect]
     Indication: HEPATITIS C
     Dosage: 180 ?g, qw
     Route: 058
     Dates: start: 20120907, end: 20121106
  4. TUMS                               /00193601/ [Concomitant]
     Dosage: 500 mg, UNK
  5. FISH OIL [Concomitant]
     Dosage: UNK
  6. GABAPENTIN [Concomitant]
     Dosage: 100 mg, UNK
  7. RENAPLEX-D [Concomitant]
  8. LISINOPRIL [Concomitant]
     Dosage: 2.5 mg, UNK
  9. NADOLOL [Concomitant]
     Dosage: 20 mg, UNK
  10. CELEXA                             /00582602/ [Concomitant]
     Dosage: 10 mg, UNK
  11. AMBIEN [Concomitant]
     Dosage: 5 mg, UNK

REACTIONS (13)
  - Anaemia [Unknown]
  - Memory impairment [Unknown]
  - Influenza like illness [Unknown]
  - Blood count abnormal [Unknown]
  - Headache [Recovered/Resolved]
  - Dizziness [Not Recovered/Not Resolved]
  - Fall [Not Recovered/Not Resolved]
  - Decreased appetite [Unknown]
  - Pain [Recovered/Resolved]
  - Pain in extremity [Unknown]
  - Platelet count increased [Unknown]
  - Fatigue [Recovered/Resolved]
  - Nausea [Unknown]
